FAERS Safety Report 7465269-8 (Version None)
Quarter: 2011Q2

REPORT INFORMATION
  Report Type: 
  Country: None (occurrence: None)
  Receive Date: 20110509
  Receipt Date: 20110505
  Transmission Date: 20111010
  Serious: Yes (Other)
  Sender: FDA-Public Use
  Company Number: PHHY2011US28449

PATIENT
  Sex: Male

DRUGS (7)
  1. CALCIUM [Concomitant]
  2. PRAZOSIN HCL [Concomitant]
     Dosage: 5 MG, UNK
  3. PRILOSEC [Concomitant]
  4. ACETAMINOPHEN [Concomitant]
  5. DIOVAN [Suspect]
     Dosage: 160 MG, UNK
  6. CELEBREX [Concomitant]
  7. AMLODIPINE BESYLATE [Concomitant]
     Dosage: 10 MG, UNK

REACTIONS (6)
  - URINE OUTPUT DECREASED [None]
  - STAPHYLOCOCCAL INFECTION [None]
  - BLOOD CREATINE INCREASED [None]
  - OEDEMA PERIPHERAL [None]
  - RENAL IMPAIRMENT [None]
  - RENAL FAILURE [None]
